FAERS Safety Report 9100337 (Version 2)
Quarter: 2013Q2

REPORT INFORMATION
  Report Type: Spontaneous
  Country: US (occurrence: US)
  Receive Date: 20130215
  Receipt Date: 20130602
  Transmission Date: 20140414
  Serious: No
  Sender: FDA-Public Use
  Company Number: US-009507513-1302USA002468

PATIENT
  Age: 24 Year
  Sex: Female

DRUGS (1)
  1. IMPLANON [Suspect]
     Indication: CONTRACEPTION
     Dosage: UNK
     Dates: start: 20120731, end: 20130205

REACTIONS (3)
  - Product quality issue [Unknown]
  - Device breakage [Recovered/Resolved]
  - No adverse event [Unknown]
